FAERS Safety Report 7942184-4 (Version None)
Quarter: 2011Q4

REPORT INFORMATION
  Report Type: 
  Country: None (occurrence: None)
  Receive Date: 20111122
  Receipt Date: 20111107
  Transmission Date: 20120403
  Serious: Yes (Death, Life-Threatening, Hospitalization, Other)
  Sender: FDA-Public Use
  Company Number: 2011P1010234

PATIENT
  Age: 74 Year
  Sex: Female

DRUGS (2)
  1. WARFARIN SODIUM [Suspect]
     Indication: ANTICOAGULANT THERAPY
     Dosage: 15 MG;X1 10 MG;X1 5 MG
  2. HEPARIN [Suspect]
     Indication: ANTICOAGULANT THERAPY
     Dosage: *FULL DOSE*

REACTIONS (12)
  - SEPTIC SHOCK [None]
  - MULTI-ORGAN FAILURE [None]
  - SKIN NECROSIS [None]
  - SKIN INDURATION [None]
  - RASH ERYTHEMATOUS [None]
  - SKIN OEDEMA [None]
  - SKIN LESION [None]
  - HEPARIN-INDUCED THROMBOCYTOPENIA [None]
  - PULSELESS ELECTRICAL ACTIVITY [None]
  - SKIN EXFOLIATION [None]
  - RENAL FAILURE ACUTE [None]
  - CARDIOPULMONARY FAILURE [None]
